FAERS Safety Report 6344601-2 (Version None)
Quarter: 2009Q3

REPORT INFORMATION
  Report Type: 
  Country: None (occurrence: None)
  Receive Date: 20090908
  Receipt Date: 20090903
  Transmission Date: 20100115
  Serious: Yes (Hospitalization, Other)
  Sender: FDA-Public Use
  Company Number: US-ABBOTT-09P-163-0584908-00

PATIENT
  Sex: Female
  Weight: 64.014 kg

DRUGS (36)
  1. HUMIRA [Suspect]
     Indication: ARTHRITIS
     Dates: start: 20030602, end: 20031110
  2. HUMIRA [Suspect]
     Dates: start: 20031110, end: 20050901
  3. HUMIRA [Suspect]
     Route: 058
     Dates: start: 20030103, end: 20061227
  4. HUMIRA [Suspect]
     Route: 058
     Dates: start: 20060103, end: 20061025
  5. NIACIN [Concomitant]
     Indication: DRUG USE FOR UNKNOWN INDICATION
  6. MG [Concomitant]
     Indication: DRUG USE FOR UNKNOWN INDICATION
  7. CLARINEX [Concomitant]
     Indication: HYPERSENSITIVITY
  8. CLARINEX [Concomitant]
  9. ASPIRIN [Concomitant]
     Indication: CARDIAC DISORDER
     Dates: start: 20060309
  10. AZULFIDINE EN 500 MG [Concomitant]
     Indication: DRUG USE FOR UNKNOWN INDICATION
     Route: 048
     Dates: start: 20060706, end: 20061227
  11. AZULFIDINE EN 500 MG [Concomitant]
     Route: 048
  12. FOLIC ACID [Concomitant]
     Indication: DRUG USE FOR UNKNOWN INDICATION
     Route: 048
     Dates: start: 20060522, end: 20061227
  13. NIASPAN [Concomitant]
     Indication: BLOOD CHOLESTEROL INCREASED
     Route: 048
     Dates: start: 20060309
  14. NIASPAN [Concomitant]
     Dates: end: 20090210
  15. TOPAMAX [Concomitant]
     Indication: DRUG USE FOR UNKNOWN INDICATION
     Route: 048
     Dates: start: 20060103, end: 20090210
  16. NEXIUM [Concomitant]
     Indication: ULCER
     Route: 048
     Dates: start: 20060103, end: 20070703
  17. NEXIUM [Concomitant]
  18. METHOTREXATE [Concomitant]
     Indication: DRUG USE FOR UNKNOWN INDICATION
     Dates: end: 20000201
  19. METHOTREXATE [Concomitant]
     Dates: start: 20001201
  20. METHOTREXATE [Concomitant]
  21. PREDNISONE TAB [Concomitant]
     Indication: FIBROMYALGIA
     Dates: start: 19990701
  22. PREDNISONE TAB [Concomitant]
     Dates: start: 20001201
  23. PREDNISONE TAB [Concomitant]
  24. CALCIUM [Concomitant]
     Indication: DRUG USE FOR UNKNOWN INDICATION
  25. CALCIUM +VIT D [Concomitant]
     Indication: MINERAL SUPPLEMENTATION
  26. ZELNORM [Concomitant]
     Indication: DRUG USE FOR UNKNOWN INDICATION
  27. ALLEGRA [Concomitant]
     Indication: DRUG USE FOR UNKNOWN INDICATION
  28. ALLEGRA [Concomitant]
     Dates: start: 20040601, end: 20070326
  29. FLONASE [Concomitant]
     Indication: DRUG USE FOR UNKNOWN INDICATION
     Dates: start: 20040601, end: 20090210
  30. MAXALT [Concomitant]
     Indication: HEADACHE
  31. FISH OIL [Concomitant]
     Indication: MINERAL SUPPLEMENTATION
  32. MULTI-VITAMIN [Concomitant]
     Indication: VITAMIN SUPPLEMENTATION
  33. POTASSIUM CARBONATE [Concomitant]
     Indication: VITAMIN SUPPLEMENTATION
  34. SKELAXIN [Concomitant]
     Indication: FIBROMYALGIA
  35. TRAMADOL HCL [Concomitant]
     Indication: PAIN
  36. ALBUTEROL [Concomitant]
     Indication: DRUG USE FOR UNKNOWN INDICATION

REACTIONS (60)
  - ABDOMINAL DISTENSION [None]
  - ABDOMINAL PAIN LOWER [None]
  - ABDOMINAL PAIN UPPER [None]
  - ANKLE OPERATION [None]
  - AREFLEXIA [None]
  - ARTHRALGIA [None]
  - ARTHROPATHY [None]
  - AUTOIMMUNE INNER EAR DISEASE [None]
  - AXILLARY PAIN [None]
  - BACK PAIN [None]
  - BREAST CYST [None]
  - BREAST PAIN [None]
  - BURSITIS [None]
  - CALCULUS URETERIC [None]
  - CERVICOBRACHIAL SYNDROME [None]
  - CHANGE OF BOWEL HABIT [None]
  - CONSTIPATION [None]
  - COUGH [None]
  - CYST [None]
  - DEAFNESS [None]
  - DECREASED APPETITE [None]
  - DIARRHOEA [None]
  - DIZZINESS [None]
  - DYSPAREUNIA [None]
  - DYSPNOEA [None]
  - FALL [None]
  - FATIGUE [None]
  - FLANK PAIN [None]
  - GAIT DISTURBANCE [None]
  - GASTRITIS [None]
  - GENITAL RASH [None]
  - HAEMORRHOIDS [None]
  - HEADACHE [None]
  - HYDRONEPHROSIS [None]
  - HYPOAESTHESIA [None]
  - INTERVERTEBRAL DISC DEGENERATION [None]
  - INTERVERTEBRAL DISC PROTRUSION [None]
  - JOINT INSTABILITY [None]
  - JOINT RANGE OF MOTION DECREASED [None]
  - LIGAMENT DISORDER [None]
  - MECHANICAL URTICARIA [None]
  - MENISCUS LESION [None]
  - MENOPAUSE [None]
  - MONONEUROPATHY [None]
  - MORTON'S NEUROMA [None]
  - MUSCLE ATROPHY [None]
  - MUSCULAR WEAKNESS [None]
  - MUSCULOSKELETAL STIFFNESS [None]
  - MYALGIA [None]
  - NECK PAIN [None]
  - OVARIAN CYST [None]
  - PAIN IN EXTREMITY [None]
  - PELVIC DEFORMITY [None]
  - PELVIC PAIN [None]
  - PNEUMONIA [None]
  - POLLAKIURIA [None]
  - RADICULOPATHY [None]
  - ROAD TRAFFIC ACCIDENT [None]
  - SPONDYLOARTHROPATHY [None]
  - VOMITING [None]
